FAERS Safety Report 18145712 (Version 1)
Quarter: 2020Q3

REPORT INFORMATION
  Report Type: Spontaneous
  Country: CN (occurrence: CN)
  Receive Date: 20200813
  Receipt Date: 20200813
  Transmission Date: 20201103
  Serious: Yes (Hospitalization, Other)
  Sender: FDA-Public Use
  Company Number: CN-ACS-001775

PATIENT
  Age: 63 Year
  Sex: Male

DRUGS (1)
  1. MEROPENEM. [Suspect]
     Active Substance: MEROPENEM
     Indication: PNEUMONIA BACTERIAL
     Route: 041
     Dates: start: 202001, end: 20200208

REACTIONS (1)
  - Eosinophilic pneumonia acute [Recovered/Resolved]

NARRATIVE: CASE EVENT DATE: 202001
